FAERS Safety Report 17683490 (Version 3)
Quarter: 2021Q1

REPORT INFORMATION
  Report Type: Spontaneous
  Country: JP (occurrence: JP)
  Receive Date: 20200420
  Receipt Date: 20210312
  Transmission Date: 20210419
  Serious: Yes (Death, Life-Threatening, Hospitalization, Disabling, Other)
  Sender: FDA-Public Use
  Company Number: JP-ROCHE-2587114

PATIENT
  Age: 53 Year
  Sex: Female
  Weight: 40 kg

DRUGS (3)
  1. TECENTRIQ [Suspect]
     Active Substance: ATEZOLIZUMAB
     Indication: BREAST CANCER
     Route: 041
     Dates: start: 20200206, end: 20200206
  2. ABRAXANE [Concomitant]
     Active Substance: PACLITAXEL
  3. ERIBULIN MESILATE [Concomitant]
     Active Substance: ERIBULIN
     Indication: TRIPLE NEGATIVE BREAST CANCER
     Dosage: DOSAGE IS UNCERTAIN.
     Route: 065
     Dates: start: 20190905, end: 20201223

REACTIONS (7)
  - Blood bilirubin increased [Recovering/Resolving]
  - Pyrexia [Recovered/Resolved]
  - Tumour ulceration [Not Recovered/Not Resolved]
  - Altered state of consciousness [Recovered/Resolved with Sequelae]
  - Hypothyroidism [Recovering/Resolving]
  - Cholangitis [Recovering/Resolving]
  - Liver disorder [Recovering/Resolving]

NARRATIVE: CASE EVENT DATE: 20200219
